FAERS Safety Report 6312943-2 (Version None)
Quarter: 2009Q3

REPORT INFORMATION
  Report Type: 
  Country: None (occurrence: None)
  Receive Date: 20090818
  Receipt Date: 20090526
  Transmission Date: 20100115
  Serious: No
  Sender: FDA-Public Use
  Company Number: US-BAYER-200921877NA

PATIENT
  Age: 28 Year
  Sex: Female
  Weight: 73 kg

DRUGS (1)
  1. YAZ [Suspect]
     Indication: PREMENSTRUAL SYNDROME
     Route: 048
     Dates: start: 20080601, end: 20090301

REACTIONS (7)
  - ABDOMINAL DISTENSION [None]
  - ABNORMAL WITHDRAWAL BLEEDING [None]
  - DIARRHOEA [None]
  - GASTRIC DISORDER [None]
  - GASTRIC HYPERMOTILITY [None]
  - NO ADVERSE EVENT [None]
  - WEIGHT INCREASED [None]
